FAERS Safety Report 4567994-5 (Version None)
Quarter: 2005Q1

REPORT INFORMATION
  Report Type: 
  Country: None (occurrence: None)
  Receive Date: 20050128
  Receipt Date: 20050120
  Transmission Date: 20050727
  Serious: Yes (Life-Threatening, Hospitalization, Other)
  Sender: FDA-Public Use
  Company Number: 2004-11-0404

PATIENT
  Age: 24 Year
  Sex: Female

DRUGS (4)
  1. TEMODAL [Suspect]
     Indication: MALIGNANT OLIGODENDROGLIOMA
     Dosage: 200 MG QD X5D ORAL
     Route: 048
     Dates: start: 20040917, end: 20040921
  2. TEMODAL [Suspect]
     Indication: MALIGNANT OLIGODENDROGLIOMA
     Dosage: 200 MG QD X5D ORAL
     Route: 048
     Dates: start: 20041117, end: 20041121
  3. TEMODAL [Suspect]
     Indication: MALIGNANT OLIGODENDROGLIOMA
     Dosage: 200 MG QD X5D ORAL
     Route: 048
     Dates: start: 20040917
  4. RADIATION THERAPY [Concomitant]

REACTIONS (11)
  - ASTHENIA [None]
  - CEREBRAL HAEMORRHAGE [None]
  - DEPRESSED LEVEL OF CONSCIOUSNESS [None]
  - GRAND MAL CONVULSION [None]
  - HAEMATOMA [None]
  - HEMIPARESIS [None]
  - HYPOAESTHESIA [None]
  - INTRACRANIAL TUMOUR HAEMORRHAGE [None]
  - MALIGNANT OLIGODENDROGLIOMA [None]
  - NEOPLASM PROGRESSION [None]
  - PARAESTHESIA [None]
